FAERS Safety Report 9390716 (Version 1)
Quarter: 2013Q3

REPORT INFORMATION
  Report Type: Report from Study
  Country: US (occurrence: US)
  Receive Date: 20130709
  Receipt Date: 20130709
  Transmission Date: 20140515
  Serious: Yes (Other)
  Sender: FDA-Public Use
  Company Number: US-JNJFOC-20130701640

PATIENT
  Sex: 0

DRUGS (3)
  1. STELARA [Suspect]
     Indication: PRODUCT USED FOR UNKNOWN INDICATION
  2. BRODALUMAB [Suspect]
     Indication: PRODUCT USED FOR UNKNOWN INDICATION
  3. PLACEBO [Suspect]
     Indication: PRODUCT USED FOR UNKNOWN INDICATION

REACTIONS (3)
  - Arthralgia [Unknown]
  - Joint swelling [Unknown]
  - Activities of daily living impaired [Unknown]
